FAERS Safety Report 6234757-4 (Version None)
Quarter: 2009Q2

REPORT INFORMATION
  Report Type: 
  Country: None (occurrence: None)
  Receive Date: 20090618
  Receipt Date: 20090608
  Transmission Date: 20091009
  Serious: Yes (Hospitalization)
  Sender: FDA-Public Use
  Company Number: IT-ASTRAZENECA-2009SE02061

PATIENT
  Age: 2943 Day
  Sex: Female

DRUGS (4)
  1. MEROPENEM [Suspect]
     Indication: CYSTIC FIBROSIS
     Route: 042
     Dates: start: 20090526, end: 20090526
  2. EVION [Concomitant]
  3. PROTOVIT [Concomitant]
  4. CREON [Concomitant]

REACTIONS (2)
  - PYREXIA [None]
  - VOMITING [None]
